FAERS Safety Report 10756387 (Version 5)
Quarter: 2016Q3

REPORT INFORMATION
  Report Type: Report from Study
  Country: MX (occurrence: MX)
  Receive Date: 20150202
  Receipt Date: 20160930
  Transmission Date: 20161109
  Serious: Yes (Hospitalization)
  Sender: FDA-Public Use
  Company Number: MX-GLAXOSMITHKLINE-MX2015009334

PATIENT
  Age: 56 Year
  Sex: Female
  Weight: 60 kg

DRUGS (5)
  1. ITRACONAZOLE. [Concomitant]
     Active Substance: ITRACONAZOLE
     Indication: CHRONIC GASTRITIS
     Dosage: 200 MG, QD
     Route: 048
     Dates: start: 20150121
  2. PREDNISONE. [Concomitant]
     Active Substance: PREDNISONE
     Indication: SYSTEMIC LUPUS ERYTHEMATOSUS
     Dosage: 5 MG, BID
     Route: 048
     Dates: start: 20141204, end: 20150416
  3. BELIMUMAB [Suspect]
     Active Substance: BELIMUMAB
     Indication: LUPUS NEPHRITIS
     Dosage: 10 MG/KG, CYC
     Route: 042
     Dates: start: 20140910
  4. FUROSEMIDE. [Concomitant]
     Active Substance: FUROSEMIDE
     Indication: CHRONIC GASTRITIS
     Dosage: 20 MG, QD
     Route: 042
     Dates: start: 20150121, end: 20150124
  5. SPIRONOLACTONE. [Concomitant]
     Active Substance: SPIRONOLACTONE
     Indication: CHRONIC GASTRITIS
     Dosage: 100 MG, QD
     Route: 048
     Dates: start: 20150121, end: 20150124

REACTIONS (1)
  - Gastritis [Recovered/Resolved]

NARRATIVE: CASE EVENT DATE: 20150121
